FAERS Safety Report 23652161 (Version 1)
Quarter: 2024Q1

REPORT INFORMATION
  Report Type: Spontaneous
  Country: JP (occurrence: JP)
  Receive Date: 20240320
  Receipt Date: 20240320
  Transmission Date: 20240409
  Serious: Yes (Disabling)
  Sender: FDA-Public Use
  Company Number: JP-SANTEN-2024-AER-00011

PATIENT
  Age: 72 Year
  Sex: Male

DRUGS (1)
  1. OMIDENEPAG ISOPROPYL [Suspect]
     Active Substance: OMIDENEPAG ISOPROPYL
     Indication: Glaucoma
     Dosage: 0.05-0.1ML ONCE A DAY LEFT EYE (1 IN 1 D)
     Route: 047
     Dates: start: 20230909, end: 20231225

REACTIONS (2)
  - Visual acuity reduced [Not Recovered/Not Resolved]
  - Corneal thickening [Recovered/Resolved]

NARRATIVE: CASE EVENT DATE: 20231107
